FAERS Safety Report 5803166-1 (Version None)
Quarter: 2008Q3

REPORT INFORMATION
  Report Type: 
  Country: None (occurrence: None)
  Receive Date: 20080708
  Receipt Date: 20080624
  Transmission Date: 20090109
  Serious: No
  Sender: FDA-Public Use
  Company Number: US-ELI_LILLY_AND_COMPANY-US200805000597

PATIENT
  Sex: Female

DRUGS (4)
  1. EVISTA [Suspect]
     Indication: OSTEOPOROSIS
     Dosage: 60 MG, EACH MORNING
     Dates: start: 20070301, end: 20080301
  2. EVISTA [Suspect]
     Dosage: 60 MG, UNK
     Dates: start: 20080101
  3. ARIMIDEX [Concomitant]
  4. CALCIUM [Concomitant]

REACTIONS (3)
  - ABDOMINAL DISTENSION [None]
  - HEART RATE IRREGULAR [None]
  - JOINT SWELLING [None]
